FAERS Safety Report 7622646-X (Version None)
Quarter: 2011Q3

REPORT INFORMATION
  Report Type: 
  Country: None (occurrence: None)
  Receive Date: 20110712
  Receipt Date: 20110627
  Transmission Date: 20111222
  Serious: Yes (Hospitalization, Other)
  Sender: FDA-Public Use
  Company Number: 2011MA008123

PATIENT
  Age: 34 Year
  Sex: Male
  Weight: 62 kg

DRUGS (17)
  1. PRAVASTATIN [Concomitant]
  2. COLCHICINE [Suspect]
     Indication: GOUT
     Dosage: 1 MG;TID
     Dates: start: 20091020, end: 20091028
  3. FERROUS ASCORBATE [Concomitant]
  4. CYCLOSPORINE [Concomitant]
  5. HYDROCORTISONE 1%-P CREAM [Suspect]
     Indication: HEART AND LUNG TRANSPLANT
     Dosage: 20 MG;QD;UN
  6. CALCIUM CARBONATE [Concomitant]
  7. CHOLECALCIFEROL [Concomitant]
  8. PANCREATIN [Concomitant]
  9. COLIMYCIN [Concomitant]
  10. COTRIM [Concomitant]
  11. TOCOPHEROL CONCENTRATE CAP [Concomitant]
  12. ESOMEPRAZOLE MAGNESIUM [Concomitant]
  13. NICORANDIL [Concomitant]
  14. LYSINE ACETYLSALICYLATE [Concomitant]
  15. EVEROLIMUS [Concomitant]
  16. AZITHROMYCIN [Concomitant]
  17. IRBESARTAN [Concomitant]

REACTIONS (28)
  - GOUT [None]
  - GASTROINTESTINAL DISORDER [None]
  - LYMPHOPENIA [None]
  - CORONARY ARTERY DISEASE [None]
  - COUGH [None]
  - INFERIOR VENA CAVA DILATATION [None]
  - DIARRHOEA [None]
  - OXYGEN SATURATION DECREASED [None]
  - CYTOLYTIC HEPATITIS [None]
  - IMMUNOSUPPRESSANT DRUG LEVEL DECREASED [None]
  - TOXICITY TO VARIOUS AGENTS [None]
  - RHABDOMYOLYSIS [None]
  - DYSPNOEA [None]
  - LEUKOCYTOSIS [None]
  - PLATELET COUNT DECREASED [None]
  - CONDITION AGGRAVATED [None]
  - LEFT VENTRICULAR FAILURE [None]
  - BRONCHIOLITIS [None]
  - DRUG INTOLERANCE [None]
  - RESPIRATORY RATE INCREASED [None]
  - RALES [None]
  - EJECTION FRACTION DECREASED [None]
  - HAEMOPTYSIS [None]
  - BLOOD PRESSURE SYSTOLIC INCREASED [None]
  - HEART RATE INCREASED [None]
  - DRUG INTERACTION [None]
  - RENAL FAILURE CHRONIC [None]
  - ACUTE RESPIRATORY FAILURE [None]
